FAERS Safety Report 6437458-2 (Version None)
Quarter: 2009Q4

REPORT INFORMATION
  Report Type: 
  Country: None (occurrence: None)
  Receive Date: 20091112
  Receipt Date: 20091029
  Transmission Date: 20100525
  Serious: Yes (Other)
  Sender: FDA-Public Use
  Company Number: PHHY2009JP47383

PATIENT
  Sex: Female
  Weight: 51 kg

DRUGS (2)
  1. ZOMETA [Suspect]
     Indication: MULTIPLE MYELOMA
     Dosage: 2 MG, PER ADMINISTRATION
     Route: 042
     Dates: start: 20080401, end: 20090501
  2. ZOMETA [Suspect]
     Dosage: 2 MG, PER ADMINISTRATION
     Route: 042
     Dates: start: 20090703

REACTIONS (5)
  - GINGIVAL SWELLING [None]
  - LOOSE TOOTH [None]
  - OSTEOMYELITIS [None]
  - PURULENT DISCHARGE [None]
  - TOOTH EXTRACTION [None]
